FAERS Safety Report 6600319-X (Version None)
Quarter: 2010Q1

REPORT INFORMATION
  Report Type: 
  Country: None (occurrence: None)
  Receive Date: 20100217
  Receipt Date: 20100204
  Transmission Date: 20100710
  Serious: Yes (Death)
  Sender: FDA-Public Use
  Company Number: 2010-0409

PATIENT
  Age: 72 Year
  Sex: Male

DRUGS (1)
  1. LANREOTIDE AUTOGEL (LANREOTIDE) (LANREOTIDE ACETATE) [Suspect]
     Indication: NEUROENDOCRINE TUMOUR
     Dosage: 60 MG (60 MG, 1 IN 2 WK) , SUBCUTANEOUS
     Route: 058
     Dates: start: 20090403

REACTIONS (1)
  - DEATH [None]
